FAERS Safety Report 16657703 (Version 1)
Quarter: 2019Q3

REPORT INFORMATION
  Report Type: Spontaneous
  Country: CN (occurrence: CN)
  Receive Date: 20190801
  Receipt Date: 20190801
  Transmission Date: 20191004
  Serious: Yes (Other)
  Sender: FDA-Public Use
  Company Number: CN-BAYER-2019-140978

PATIENT
  Age: 69 Year
  Sex: Male
  Weight: 62 kg

DRUGS (1)
  1. AVELOX [Suspect]
     Active Substance: MOXIFLOXACIN HYDROCHLORIDE
     Indication: PNEUMONIA
     Dosage: 0.4 G, QD
     Route: 041
     Dates: start: 20190626, end: 20190627

REACTIONS (6)
  - Tremor [Recovered/Resolved]
  - Chest discomfort [Recovered/Resolved]
  - Asthenia [Recovered/Resolved]
  - Sinus bradycardia [Recovered/Resolved]
  - Pallor [Recovered/Resolved]
  - Nodal rhythm [Recovered/Resolved]

NARRATIVE: CASE EVENT DATE: 20190626
